FAERS Safety Report 15449106 (Version 2)
Quarter: 2018Q4

REPORT INFORMATION
  Report Type: Spontaneous
  Country: US (occurrence: US)
  Receive Date: 20180930
  Receipt Date: 20181002
  Transmission Date: 20190204
  Serious: Yes (Hospitalization)
  Sender: FDA-Public Use
  Company Number: US-BEH-2018095156

PATIENT
  Age: 48 Year
  Sex: Female

DRUGS (2)
  1. HIZENTRA [Suspect]
     Active Substance: HUMAN IMMUNOGLOBULIN G
     Indication: SELECTIVE IGA IMMUNODEFICIENCY
     Dosage: 8 G, UNK
     Route: 058
     Dates: start: 20180919
  2. HIZENTRA [Suspect]
     Active Substance: HUMAN IMMUNOGLOBULIN G
     Indication: IMMUNODEFICIENCY COMMON VARIABLE
     Dosage: 8 G, UNK
     Route: 058
     Dates: start: 20180201

REACTIONS (8)
  - Viral infection [Recovering/Resolving]
  - Dizziness [Recovering/Resolving]
  - Musculoskeletal stiffness [Recovering/Resolving]
  - Headache [Recovering/Resolving]
  - Throat lesion [Recovering/Resolving]
  - Influenza like illness [Recovering/Resolving]
  - Photophobia [Recovering/Resolving]
  - Pyrexia [Recovering/Resolving]

NARRATIVE: CASE EVENT DATE: 20180920
